FAERS Safety Report 14023769 (Version 1)
Quarter: 2017Q3

REPORT INFORMATION
  Report Type: Spontaneous
  Country: US (occurrence: US)
  Receive Date: 20170929
  Receipt Date: 20170929
  Transmission Date: 20171128
  Serious: No
  Sender: FDA-Public Use
  Company Number: US-UPSHER-SMITH LABORATORIES, INC.-2017USL00131

PATIENT
  Age: 68 Year
  Sex: Female
  Weight: 76.19 kg

DRUGS (1)
  1. KLOR-CON M [Suspect]
     Active Substance: POTASSIUM CHLORIDE
     Indication: COELIAC DISEASE
     Dosage: 20 MEQ, 1X/DAY
     Route: 048
     Dates: start: 20170705, end: 20170710

REACTIONS (5)
  - Unevaluable event [Unknown]
  - Diarrhoea [Unknown]
  - Malaise [Unknown]
  - Abdominal discomfort [Unknown]
  - Off label use [Recovered/Resolved]

NARRATIVE: CASE EVENT DATE: 201707
